FAERS Safety Report 11882141 (Version 2)
Quarter: 2017Q1

REPORT INFORMATION
  Report Type: Spontaneous
  Country: IN (occurrence: IN)
  Receive Date: 20151231
  Receipt Date: 20170315
  Transmission Date: 20170428
  Serious: Yes (Hospitalization, Other)
  Sender: FDA-Public Use
  Company Number: IN-SUN PHARMACEUTICAL INDUSTRIES LTD-2015R1-108620

PATIENT
  Age: 12 Month
  Sex: Female

DRUGS (1)
  1. NALIDIXIC ACID [Suspect]
     Active Substance: NALIDIXIC ACID
     Indication: DIARRHOEA
     Dosage: UNK
     Route: 065

REACTIONS (1)
  - Benign intracranial hypertension [Recovered/Resolved]
